FAERS Safety Report 7128511-9 (Version None)
Quarter: 2010Q4

REPORT INFORMATION
  Report Type: 
  Country: None (occurrence: None)
  Receive Date: 20101130
  Receipt Date: 20101119
  Transmission Date: 20110411
  Serious: Yes (Other)
  Sender: FDA-Public Use
  Company Number: KR-JNJFOC-20101107597

PATIENT
  Age: 74 Year
  Sex: Male

DRUGS (2)
  1. DURAGESIC-100 [Suspect]
     Indication: PAIN MANAGEMENT
     Route: 062
  2. DURAGESIC-100 [Suspect]
     Route: 062

REACTIONS (4)
  - DEMENTIA [None]
  - DEPRESSION [None]
  - HALLUCINATION [None]
  - NARCOTIC INTOXICATION [None]
